FAERS Safety Report 18354011 (Version 6)
Quarter: 2021Q1

REPORT INFORMATION
  Report Type: Report from Study
  Country: CO (occurrence: CO)
  Receive Date: 20201007
  Receipt Date: 20210210
  Transmission Date: 20210419
  Serious: Yes (Hospitalization, Other)
  Sender: FDA-Public Use
  Company Number: NVSC2020CO244139

PATIENT
  Age: 31 Year
  Sex: Female
  Weight: 84 kg

DRUGS (6)
  1. KISQALI [Suspect]
     Active Substance: RIBOCICLIB
     Indication: HER2 NEGATIVE BREAST CANCER
  2. PALBOCICLIB [Concomitant]
     Active Substance: PALBOCICLIB
     Indication: BREAST CANCER METASTATIC
     Dosage: 125 MG, QD
     Route: 048
     Dates: start: 20200805
  3. KISQALI [Suspect]
     Active Substance: RIBOCICLIB
     Indication: BREAST CANCER METASTATIC
     Dosage: 600 MG, QD (3 OF 200 MG)
     Route: 048
     Dates: start: 2019, end: 202008
  4. FEMARA [Suspect]
     Active Substance: LETROZOLE
     Indication: BREAST CANCER
     Dosage: 2.5 MG, QD
     Route: 048
     Dates: start: 2019
  5. PALBOCICLIB [Concomitant]
     Active Substance: PALBOCICLIB
     Indication: HER2 NEGATIVE BREAST CANCER
  6. GOSERELIN [Concomitant]
     Active Substance: GOSERELIN
     Indication: BREAST CANCER
     Dosage: UNK, QD
     Route: 048

REACTIONS (13)
  - Cyst [Unknown]
  - Ear congestion [Recovered/Resolved]
  - Musculoskeletal stiffness [Unknown]
  - Headache [Unknown]
  - Breast cancer [Unknown]
  - Malignant neoplasm progression [Unknown]
  - Vomiting [Unknown]
  - Metastases to spine [Unknown]
  - Metastases to neck [Unknown]
  - Gait disturbance [Unknown]
  - Paralysis [Not Recovered/Not Resolved]
  - Neck pain [Not Recovered/Not Resolved]
  - Mastitis [Recovered/Resolved]

NARRATIVE: CASE EVENT DATE: 20200908
